FAERS Safety Report 13984984 (Version 5)
Quarter: 2019Q2

REPORT INFORMATION
  Report Type: Report from Study
  Country: US (occurrence: US)
  Receive Date: 20170919
  Receipt Date: 20190520
  Transmission Date: 20190711
  Serious: Yes (Hospitalization, Other)
  Sender: FDA-Public Use
  Company Number: US-ACTELION-A-US2017-159422

PATIENT
  Sex: Male

DRUGS (1)
  1. OPSUMIT [Suspect]
     Active Substance: MACITENTAN
     Indication: PULMONARY ARTERIAL HYPERTENSION
     Dosage: 10 MG, QD
     Route: 048
     Dates: start: 20140206

REACTIONS (6)
  - Gait disturbance [Unknown]
  - Hospitalisation [Unknown]
  - Cardiac operation [Unknown]
  - Continuous positive airway pressure [Unknown]
  - Malaise [Unknown]
  - Cardiac pacemaker insertion [Unknown]
